FAERS Safety Report 5525625-1 (Version None)
Quarter: 2007Q4

REPORT INFORMATION
  Report Type: 
  Country: None (occurrence: None)
  Receive Date: 20071126
  Receipt Date: 20070821
  Transmission Date: 20080405
  Serious: Yes (Other)
  Sender: FDA-Public Use
  Company Number: BE-ROCHE-503812

PATIENT
  Age: 64 Year
  Sex: Male
  Weight: 61 kg

DRUGS (1)
  1. XELODA [Suspect]
     Indication: COLON CANCER
     Dosage: DOSING REGIMEN: BID 14 DAYS.
     Route: 048
     Dates: start: 20070305, end: 20070606

REACTIONS (1)
  - ULCERATIVE KERATITIS [None]
